FAERS Safety Report 9828481 (Version 1)
Quarter: 2013Q4

REPORT INFORMATION
  Report Type: Spontaneous
  Country: US (occurrence: None)
  Receive Date: 20131120
  Receipt Date: 20131120
  Transmission Date: 20140711
  Serious: No
  Sender: FDA-Public Use
  Company Number: 1000049805

PATIENT
  Sex: Male

DRUGS (2)
  1. VIIBRYD [Suspect]
     Indication: ANXIETY
     Dosage: 10 MG (10 MG, 1 IN 1 D)
  2. VIIBRYD (VILAZODONE HYDROCHLORIDE) (TABLETS) [Suspect]
     Indication: ANXIETY
     Dosage: 40 MG (40 MG, 1 IN 1 D)
     Dates: end: 20131004

REACTIONS (5)
  - Anxiety [None]
  - Diarrhoea [None]
  - Altered visual depth perception [None]
  - Sexual dysfunction [None]
  - Off label use [None]
